FAERS Safety Report 10365962 (Version 1)
Quarter: 2014Q3

REPORT INFORMATION
  Report Type: Report from Study
  Country: BR (occurrence: BR)
  Receive Date: 20140806
  Receipt Date: 20140806
  Transmission Date: 20150326
  Serious: Yes (Life-Threatening)
  Sender: FDA-Public Use
  Company Number: PHHY2014BR096415

PATIENT
  Age: 83 Year
  Sex: Male
  Weight: 100 kg

DRUGS (7)
  1. RISPERIDONE. [Concomitant]
     Active Substance: RISPERIDONE
     Indication: PARKINSON^S DISEASE
     Dosage: 1 DF (1 TABLET), QD (BEFORE GOING TO SLEEP)
  2. PROLOPA [Concomitant]
     Active Substance: BENSERAZIDE\LEVODOPA
     Indication: PARKINSON^S DISEASE
     Dosage: 4 DF (4 TABLETS), DAILY
  3. EXELON [Suspect]
     Active Substance: RIVASTIGMINE TARTRATE
     Indication: DEMENTIA ALZHEIMER^S TYPE
     Dosage: 1 DF (1 TABLET), QHS
     Dates: start: 20140328
  4. RIVASTIGMINE [Suspect]
     Active Substance: RIVASTIGMINE
     Indication: DEMENTIA ALZHEIMER^S TYPE
     Dosage: 1 DF (1 TABLET), BID (IN THE MORNING AND AT NIGHT)
  5. SIFROL [Concomitant]
     Active Substance: PRAMIPEXOLE
     Indication: DEMENTIA ALZHEIMER^S TYPE
     Dosage: 1 DF (1 TABLET), QHS
  6. PAROXETINE [Concomitant]
     Active Substance: PAROXETINE\PAROXETINE HYDROCHLORIDE
     Indication: DEPRESSION
     Dosage: 1 DF (1 TABLET), QD (AFTER DINNER)
  7. RISPERIDONE. [Concomitant]
     Active Substance: RISPERIDONE
     Indication: DEMENTIA ALZHEIMER^S TYPE

REACTIONS (7)
  - Irritability [Unknown]
  - Depersonalisation [Not Recovered/Not Resolved]
  - Incoherent [Not Recovered/Not Resolved]
  - Dementia Alzheimer^s type [Not Recovered/Not Resolved]
  - Umbilical hernia [Recovered/Resolved]
  - Anger [Unknown]
  - Insomnia [Not Recovered/Not Resolved]

NARRATIVE: CASE EVENT DATE: 201403
